FAERS Safety Report 7903480-X (Version None)
Quarter: 2011Q4

REPORT INFORMATION
  Report Type: 
  Country: None (occurrence: None)
  Receive Date: 20111107
  Receipt Date: 20111022
  Transmission Date: 20120403
  Serious: Yes (Death)
  Sender: FDA-Public Use
  Company Number: 2011MA014670

PATIENT
  Age: 19 Year
  Sex: Female
  Weight: 65.7716 kg

DRUGS (4)
  1. VENLAFAXINE HYDROCHLORIDE [Suspect]
     Dosage: 75 MG;PO
     Route: 048
     Dates: start: 20110309
  2. DIAZEPAM [Suspect]
  3. OXYCODONE HCL [Suspect]
  4. TEMAZEPAM [Suspect]
     Indication: INSOMNIA
     Dosage: 30 MG;HS;PO
     Route: 048
     Dates: start: 20110401

REACTIONS (2)
  - ACCIDENTAL DEATH [None]
  - MULTIPLE DRUG OVERDOSE [None]
